FAERS Safety Report 10563191 (Version 2)
Quarter: 2014Q4

REPORT INFORMATION
  Report Type: Spontaneous
  Country: US (occurrence: US)
  Receive Date: 20141104
  Receipt Date: 20141104
  Transmission Date: 20150529
  Serious: No
  Sender: FDA-Public Use
  Company Number: US-B.I. PHARMACEUTICALS,INC./RIDGEFIELD-2014-BI-47341BP

PATIENT
  Age: 66 Year
  Sex: Male
  Weight: 65.77 kg

DRUGS (1)
  1. PRADAXA [Suspect]
     Active Substance: DABIGATRAN ETEXILATE MESYLATE
     Indication: PRODUCT USED FOR UNKNOWN INDICATION
     Dosage: 300 MG
     Route: 048
     Dates: start: 20120915

REACTIONS (5)
  - Hyperlipidaemia [Unknown]
  - Carotid artery stenosis [Unknown]
  - Anaemia [Unknown]
  - Coronary artery disease [Unknown]
  - Angina pectoris [Unknown]

NARRATIVE: CASE EVENT DATE: 20121212
